FAERS Safety Report 14232435 (Version 5)
Quarter: 2018Q1

REPORT INFORMATION
  Report Type: Report from Study
  Country: US (occurrence: US)
  Receive Date: 20171128
  Receipt Date: 20180205
  Transmission Date: 20180508
  Serious: Yes (Hospitalization)
  Sender: FDA-Public Use
  Company Number: US-B.I. PHARMACEUTICALS,INC./RIDGEFIELD-2017-BI-056897

PATIENT
  Sex: Female

DRUGS (1)
  1. OFEV [Suspect]
     Active Substance: NINTEDANIB
     Indication: IDIOPATHIC PULMONARY FIBROSIS
     Route: 048
     Dates: start: 20170825

REACTIONS (11)
  - Head injury [Unknown]
  - Cough [Unknown]
  - Dysphonia [Unknown]
  - Contusion [Unknown]
  - Dyspepsia [Unknown]
  - Muscle spasms [Unknown]
  - Dry mouth [Unknown]
  - Fall [Unknown]
  - Diarrhoea [Not Recovered/Not Resolved]
  - Seasonal allergy [Unknown]
  - Fatigue [Unknown]
